FAERS Safety Report 20568617 (Version 1)
Quarter: 2022Q1

REPORT INFORMATION
  Report Type: Spontaneous
  Country: US (occurrence: None)
  Receive Date: 20220308
  Receipt Date: 20220308
  Transmission Date: 20220423
  Serious: Yes (unspecified)
  Sender: FDA-Public Use
  Company Number: None

PATIENT
  Age: 36 Year
  Sex: Female
  Weight: 121.6 kg

DRUGS (1)
  1. PACLITAXEL [Suspect]
     Active Substance: PACLITAXEL
     Indication: Thymoma
     Dosage: OTHER FREQUENCY : EVERY 21 DAYS;?
     Route: 041
     Dates: start: 20220304

REACTIONS (4)
  - Dyspnoea [None]
  - Erythema [None]
  - Tachycardia [None]
  - Infusion related reaction [None]

NARRATIVE: CASE EVENT DATE: 20220304
